FAERS Safety Report 25476469 (Version 3)
Quarter: 2025Q3

REPORT INFORMATION
  Report Type: Spontaneous
  Country: US (occurrence: US)
  Receive Date: 20250625
  Receipt Date: 20250919
  Transmission Date: 20251021
  Serious: No
  Sender: TOLMAR
  Company Number: US-TOLMAR, INC.-25US057163

PATIENT
  Sex: Male

DRUGS (5)
  1. ELIGARD [Suspect]
     Active Substance: LEUPROLIDE ACETATE
     Indication: Prostate cancer
     Dosage: EXPIRATION DATES: APR-2026; MAR-2026; MAR-2026
     Route: 058
     Dates: start: 20250221
  2. ELIGARD [Suspect]
     Active Substance: LEUPROLIDE ACETATE
     Dosage: EXPIRATION DATES: APR-2026; MAR-2026; MAR-2026
     Route: 058
     Dates: start: 20250221
  3. ELIGARD [Suspect]
     Active Substance: LEUPROLIDE ACETATE
     Dosage: 7.5 MILLIGRAM, Q 1 MONTH
     Route: 058
     Dates: start: 20240918
  4. ELIGARD [Suspect]
     Active Substance: LEUPROLIDE ACETATE
     Dates: start: 20250221
  5. DEVICE [Suspect]
     Active Substance: DEVICE
     Indication: Prostate cancer

REACTIONS (3)
  - Intercepted product preparation error [Unknown]
  - Device issue [Unknown]
  - Product packaging quantity issue [Unknown]
